FAERS Safety Report 11460090 (Version 1)
Quarter: 2015Q3

REPORT INFORMATION
  Report Type: Spontaneous
  Country: US (occurrence: US)
  Receive Date: 20150904
  Receipt Date: 20150904
  Transmission Date: 20151125
  Serious: No
  Sender: FDA-Public Use
  Company Number: US-BAUSCH-BL-2015-013745

PATIENT

DRUGS (2)
  1. PODOFILOX TOPICAL SOLUTION 0.5% [Suspect]
     Active Substance: PODOFILOX
     Indication: SKIN PAPILLOMA
  2. KEFLEX [Concomitant]
     Active Substance: CEPHALEXIN
     Indication: PRODUCT USED FOR UNKNOWN INDICATION

REACTIONS (1)
  - Drug ineffective for unapproved indication [Not Recovered/Not Resolved]
